FAERS Safety Report 21914046 (Version 3)
Quarter: 2023Q2

REPORT INFORMATION
  Report Type: Report from Study
  Country: BR (occurrence: BR)
  Receive Date: 20230126
  Receipt Date: 20230426
  Transmission Date: 20230721
  Serious: Yes (Hospitalization)
  Sender: FDA-Public Use
  Company Number: BR-BIOGEN-2023BI01182650

PATIENT
  Age: 16 Month
  Sex: Female

DRUGS (2)
  1. SPINRAZA [Suspect]
     Active Substance: NUSINERSEN
     Indication: Spinal muscular atrophy
     Route: 050
     Dates: start: 202103, end: 202208
  2. SPINRAZA [Suspect]
     Active Substance: NUSINERSEN
     Dosage: 4TH DOSE
     Route: 050
     Dates: start: 20210706

REACTIONS (5)
  - Severe acute respiratory syndrome [Unknown]
  - Respiratory syncytial virus infection [Unknown]
  - Pneumonia bacterial [Unknown]
  - Cardio-respiratory arrest [Unknown]
  - Respiratory tract infection [Unknown]

NARRATIVE: CASE EVENT DATE: 20210501
